FAERS Safety Report 12870233 (Version 5)
Quarter: 2017Q3

REPORT INFORMATION
  Report Type: Report from Study
  Country: JP (occurrence: JP)
  Receive Date: 20161021
  Receipt Date: 20170811
  Transmission Date: 20171127
  Serious: Yes (Hospitalization, Other)
  Sender: FDA-Public Use
  Company Number: JP-AMGEN-JPNCT2016142424

PATIENT
  Age: 78 Year
  Sex: Male
  Weight: 44 kg

DRUGS (25)
  1. 5-FU                               /00098801/ [Suspect]
     Active Substance: FLUOROURACIL
     Dosage: 3200 MG, Q2WEEKS
     Route: 041
     Dates: start: 20161020, end: 20170304
  2. OXALIPLATIN. [Suspect]
     Active Substance: OXALIPLATIN
     Dosage: 110 MG, Q2WEEKS
     Route: 041
     Dates: start: 20161020, end: 20161117
  3. PANITUMUMAB [Suspect]
     Active Substance: PANITUMUMAB
     Dosage: 250 MG, Q2WK
     Route: 041
     Dates: start: 20161020, end: 20170302
  4. 5-FU                               /00098801/ [Suspect]
     Active Substance: FLUOROURACIL
     Dosage: 540 MG, Q2WEEKS
     Route: 040
     Dates: start: 20161020, end: 20170302
  5. HOKUNALIN                          /00654901/ [Concomitant]
     Active Substance: TULOBUTEROL
     Indication: OBSTRUCTIVE AIRWAYS DISORDER
     Dosage: 2 MG, UNK
     Route: 062
     Dates: start: 20160708
  6. LAFUTIDINE [Concomitant]
     Active Substance: LAFUTIDINE
     Indication: GASTRITIS PROPHYLAXIS
  7. HEPAFLUSH [Concomitant]
     Active Substance: HEPARIN SODIUM
     Indication: CATHETER MANAGEMENT
     Dosage: 100 IU, UNK
     Route: 042
     Dates: start: 20160908
  8. 5-FU                               /00098801/ [Suspect]
     Active Substance: FLUOROURACIL
     Indication: COLON CANCER
     Dosage: 540 MG, Q2WK
     Route: 040
     Dates: start: 20160908, end: 20160923
  9. REBAMIPIDE [Concomitant]
     Active Substance: REBAMIPIDE
     Indication: BACK PAIN
     Dosage: 100 MG, BID
     Route: 048
  10. PANITUMUMAB [Suspect]
     Active Substance: PANITUMUMAB
     Indication: COLON CANCER
     Dosage: 250 MG, Q2WK
     Route: 041
     Dates: start: 20160908, end: 20160923
  11. OXALIPLATIN. [Suspect]
     Active Substance: OXALIPLATIN
     Dosage: 90 MG, Q2WEEKS
     Route: 041
     Dates: start: 20161201, end: 20170302
  12. CALCIUM LEVOFOLINATE [Concomitant]
     Active Substance: LEVOLEUCOVORIN CALCIUM
     Indication: COLON CANCER
     Dosage: 270 MG, Q2WEEKS
     Route: 041
     Dates: start: 20160908, end: 20160923
  13. MINOMYCIN [Concomitant]
     Active Substance: MINOCYCLINE HYDROCHLORIDE
     Indication: PROPHYLAXIS
     Dosage: 50 MG, UNK
     Route: 048
     Dates: start: 20160908
  14. PROTECADIN [Concomitant]
     Active Substance: LAFUTIDINE
     Indication: PROPHYLAXIS
  15. DRENISON                           /00182901/ [Concomitant]
     Indication: PARONYCHIA
     Dosage: 4 MUG, UNK
     Route: 062
  16. ONETRAM [Concomitant]
     Active Substance: TRAMADOL HYDROCHLORIDE
     Indication: BACK PAIN
     Dosage: 100 MG, UNK
     Route: 048
  17. ONETRAM [Concomitant]
     Active Substance: TRAMADOL HYDROCHLORIDE
     Indication: BACK PAIN
  18. MAGMITT [Concomitant]
     Active Substance: MAGNESIUM OXIDE
     Indication: CONSTIPATION
     Dosage: UNK
     Route: 048
  19. CALCIUM LEVOFOLINATE [Concomitant]
     Active Substance: LEVOLEUCOVORIN CALCIUM
     Dosage: 270 MG, Q2WEEKS
     Route: 041
     Dates: start: 20161020, end: 20170302
  20. LAFUTIDINE [Concomitant]
     Active Substance: LAFUTIDINE
     Indication: STOMATITIS
     Dosage: 10 MG, UNK
     Route: 048
     Dates: start: 20160908
  21. TAKEPRON [Concomitant]
     Active Substance: LANSOPRAZOLE
     Indication: PROPHYLAXIS AGAINST GASTROINTESTINAL ULCER
     Dosage: 30 MG, UNK
     Route: 048
  22. LOXONIN [Concomitant]
     Active Substance: LOXOPROFEN SODIUM
     Indication: BACK PAIN
     Dosage: 60 MG, BID
     Route: 048
  23. 5-FU                               /00098801/ [Suspect]
     Active Substance: FLUOROURACIL
     Dosage: 3200 MG, Q2WK
     Route: 041
     Dates: start: 20160908, end: 20160923
  24. OXALIPLATIN. [Suspect]
     Active Substance: OXALIPLATIN
     Indication: COLON CANCER
     Dosage: 110 MG, Q2WEEKS
     Route: 041
     Dates: start: 20160908, end: 20160923
  25. PROTECADIN [Concomitant]
     Active Substance: LAFUTIDINE
     Indication: GASTRITIS
     Dosage: 10 MG, UNK
     Route: 048
     Dates: start: 20160908

REACTIONS (5)
  - Peripheral sensory neuropathy [Unknown]
  - Lung disorder [Recovering/Resolving]
  - Hypoxia [Recovered/Resolved]
  - C-reactive protein increased [Unknown]
  - Pneumonia [Recovered/Resolved]

NARRATIVE: CASE EVENT DATE: 20161006
